FAERS Safety Report 4415398-8 (Version None)
Quarter: 2004Q2

REPORT INFORMATION
  Report Type: 
  Country: None (occurrence: None)
  Receive Date: 20040630
  Receipt Date: 20030915
  Transmission Date: 20050107
  Serious: Yes (Other)
  Sender: FDA-Public Use
  Company Number: 2003039029

PATIENT
  Age: 59 Year
  Sex: Male
  Weight: 139.7079 kg

DRUGS (4)
  1. ZOLOFT [Suspect]
     Indication: DEPRESSION
     Dosage: 50 MG (DAILY), ORAL
     Route: 048
  2. ATORVASTATIN CALCIUM [Concomitant]
  3. INDAPAMIDE [Concomitant]
  4. BENAZEPRIL HCL [Concomitant]

REACTIONS (3)
  - ATRIAL FIBRILLATION [None]
  - BLOOD DISORDER [None]
  - PROTHROMBIN TIME ABNORMAL [None]
